FAERS Safety Report 7425381-6 (Version None)
Quarter: 2011Q2

REPORT INFORMATION
  Report Type: 
  Country: None (occurrence: None)
  Receive Date: 20110420
  Receipt Date: 20110411
  Transmission Date: 20111010
  Serious: Yes (Hospitalization)
  Sender: FDA-Public Use
  Company Number: FR-ELI_LILLY_AND_COMPANY-FR201104002597

PATIENT
  Sex: Female

DRUGS (9)
  1. ADANCOR [Concomitant]
     Dosage: UNK
  2. CYMBALTA [Suspect]
     Indication: DEPRESSION
     Dosage: 30 MG, EACH EVENING
     Route: 048
     Dates: start: 20110211, end: 20110219
  3. COVERSYL [Concomitant]
     Dosage: UNK
  4. LASIX [Concomitant]
     Dosage: UNK
  5. LANTUS [Concomitant]
     Dosage: UNK
  6. KARDEGIC [Concomitant]
     Dosage: UNK
  7. CARDENSIEL [Concomitant]
     Dosage: UNK
  8. GLUCOPHAGE [Concomitant]
     Dosage: UNK
  9. TAHOR [Concomitant]
     Dosage: UNK

REACTIONS (2)
  - BRONCHOPNEUMONIA [None]
  - EXTRAPYRAMIDAL DISORDER [None]
